FAERS Safety Report 5913918-5 (Version None)
Quarter: 2008Q4

REPORT INFORMATION
  Report Type: 
  Country: None (occurrence: None)
  Receive Date: 20081009
  Receipt Date: 20081006
  Transmission Date: 20090506
  Serious: Yes (Other)
  Sender: FDA-Public Use
  Company Number: B0540209A

PATIENT
  Age: 71 Year
  Sex: Female

DRUGS (6)
  1. ZANTAC [Suspect]
     Indication: DRUG USE FOR UNKNOWN INDICATION
     Route: 048
  2. ASPIRIN [Concomitant]
     Route: 048
  3. MEVAN [Concomitant]
     Route: 048
  4. SERMION [Concomitant]
     Route: 048
  5. NEUROTROPIN [Concomitant]
     Route: 065
  6. ALFASULY [Concomitant]
     Route: 048

REACTIONS (1)
  - AGGRESSION [None]
